FAERS Safety Report 6357286-6 (Version None)
Quarter: 2009Q3

REPORT INFORMATION
  Report Type: 
  Country: None (occurrence: None)
  Receive Date: 20090916
  Receipt Date: 20090904
  Transmission Date: 20100115
  Serious: Yes (Disabling)
  Sender: FDA-Public Use
  Company Number: PHEH2009US09112

PATIENT
  Sex: Female
  Weight: 52.608 kg

DRUGS (4)
  1. RECLAST [Suspect]
     Indication: OSTEOPOROSIS
     Dosage: 5 MG, UNK
     Route: 042
     Dates: start: 20071201
  2. ELAVIL [Concomitant]
     Dosage: UNK
  3. MULTI-VITAMINS [Concomitant]
     Dosage: UNK
  4. CALCIUM [Concomitant]
     Dosage: 1000MG, UNK

REACTIONS (3)
  - BONE PAIN [None]
  - PAIN IN EXTREMITY [None]
  - TENDON PAIN [None]
